FAERS Safety Report 6873549-X (Version None)
Quarter: 2010Q3

REPORT INFORMATION
  Report Type: 
  Country: None (occurrence: None)
  Receive Date: 20100723
  Receipt Date: 20090302
  Transmission Date: 20110219
  Serious: Yes (Other)
  Sender: FDA-Public Use
  Company Number: US-PFIZER INC-2009161045

PATIENT
  Sex: Male
  Weight: 85.714 kg

DRUGS (2)
  1. CHANTIX [Suspect]
     Dosage: UNK
     Dates: start: 20080901
  2. NEXIUM [Concomitant]
     Dosage: UNK

REACTIONS (3)
  - ANXIETY [None]
  - DEPRESSION [None]
  - INSOMNIA [None]
